FAERS Safety Report 8588126-2 (Version None)
Quarter: 2012Q3

REPORT INFORMATION
  Report Type: 
  Country: None (occurrence: None)
  Receive Date: 20120813
  Receipt Date: 20120806
  Transmission Date: 20120928
  Serious: No
  Sender: FDA-Public Use
  Company Number: US-PFIZER INC-2012192088

PATIENT
  Age: 96 Year
  Sex: Male

DRUGS (1)
  1. TOVIAZ [Suspect]
     Dosage: 8 MG, 1X/DAY
     Route: 048
     Dates: end: 20091201

REACTIONS (2)
  - ABDOMINAL PAIN [None]
  - DIARRHOEA [None]
